FAERS Safety Report 4353192-7 (Version None)
Quarter: 2004Q2

REPORT INFORMATION
  Report Type: 
  Country: None (occurrence: None)
  Receive Date: 20040503
  Receipt Date: 20040503
  Transmission Date: 20050107
  Serious: Yes (Other)
  Sender: FDA-Public Use
  Company Number: None

PATIENT
  Age: 47 Year
  Sex: Male
  Weight: 53 kg

DRUGS (1)
  1. PRIMAXIN [Suspect]
     Indication: ABDOMINAL INFECTION
     Dosage: 500 MG Q 6 H IV
     Route: 042
     Dates: start: 20031208, end: 20040106

REACTIONS (1)
  - PYREXIA [None]
